FAERS Safety Report 5195846-9 (Version None)
Quarter: 2006Q4

REPORT INFORMATION
  Report Type: 
  Country: None (occurrence: None)
  Receive Date: 20061227
  Receipt Date: 20061218
  Transmission Date: 20070319
  Serious: Yes (Death)
  Sender: FDA-Public Use
  Company Number: 06H-163-0311557-00

PATIENT
  Age: 50 Year
  Sex: Male

DRUGS (2)
  1. PRECEDEX [Suspect]
     Indication: SEDATION
     Dosage: 200 MCG, INTRAVENOUS; CONTINUOUS, INTRAVENOUS
     Route: 042
     Dates: start: 20060901, end: 20060901
  2. PRECEDEX [Suspect]
     Indication: SEDATION
     Dosage: 200 MCG, INTRAVENOUS; CONTINUOUS, INTRAVENOUS
     Route: 042
     Dates: start: 20060901, end: 20060901

REACTIONS (5)
  - BLOOD PRESSURE DECREASED [None]
  - CARDIAC DISORDER [None]
  - CARDIAC PROCEDURE COMPLICATION [None]
  - CARDIAC TAMPONADE [None]
  - HYPOXIC ENCEPHALOPATHY [None]
